FAERS Safety Report 8593048-7 (Version None)
Quarter: 2012Q3

REPORT INFORMATION
  Report Type: 
  Country: None (occurrence: None)
  Receive Date: 20120814
  Receipt Date: 20120808
  Transmission Date: 20120928
  Serious: Yes (Congenital Anomaly)
  Sender: FDA-Public Use
  Company Number: GB-VIIV HEALTHCARE LIMITED-A0989128A

PATIENT

DRUGS (2)
  1. ISENTRESS [Suspect]
     Indication: ANTIVIRAL TREATMENT
     Route: 064
     Dates: start: 20120101
  2. SELZENTRY [Suspect]
     Indication: ANTIVIRAL TREATMENT
     Route: 064
     Dates: start: 20120101

REACTIONS (2)
  - FOETAL EXPOSURE DURING PREGNANCY [None]
  - POLYDACTYLY [None]
